FAERS Safety Report 16667317 (Version 1)
Quarter: 2019Q3

REPORT INFORMATION
  Report Type: Spontaneous
  Country: US (occurrence: US)
  Receive Date: 20190805
  Receipt Date: 20190805
  Transmission Date: 20191004
  Serious: No
  Sender: FDA-Public Use
  Company Number: PHEH2019US031800

PATIENT
  Sex: Female

DRUGS (1)
  1. GLATOPA [Suspect]
     Active Substance: GLATIRAMER ACETATE
     Indication: MULTIPLE SCLEROSIS
     Dosage: 40 MG, QHS
     Route: 058
     Dates: start: 20181206

REACTIONS (5)
  - Pain in extremity [Unknown]
  - Muscle twitching [Unknown]
  - Limb discomfort [Unknown]
  - Joint swelling [Unknown]
  - Fall [Unknown]
